FAERS Safety Report 13054506 (Version 2)
Quarter: 2018Q3

REPORT INFORMATION
  Report Type: Spontaneous
  Country: US (occurrence: US)
  Receive Date: 20161222
  Receipt Date: 20180808
  Transmission Date: 20181010
  Serious: Yes (Other)
  Sender: FDA-Public Use
  Company Number: US-JAZZ-2016-US-024221

PATIENT
  Age: 18 Year
  Sex: Female

DRUGS (2)
  1. XYREM [Suspect]
     Active Substance: SODIUM OXYBATE
     Indication: PRODUCT USED FOR UNKNOWN INDICATION
     Dosage: 4.5 G, BID
     Route: 048
  2. XYREM [Suspect]
     Active Substance: SODIUM OXYBATE
     Dosage: 13 G TOTAL NIGHTLY DOSE
     Route: 048
     Dates: start: 20161124

REACTIONS (8)
  - Tibia fracture [Unknown]
  - Intentional product misuse [Unknown]
  - Syncope [Recovered/Resolved]
  - Somnolence [Recovered/Resolved]
  - Joint injury [Unknown]
  - Lethargy [Recovered/Resolved]
  - Fall [Recovered/Resolved]
  - Inappropriate schedule of drug administration [Unknown]

NARRATIVE: CASE EVENT DATE: 20161124
